FAERS Safety Report 12109605 (Version 1)
Quarter: 2016Q1

REPORT INFORMATION
  Report Type: Spontaneous
  Country: US (occurrence: None)
  Receive Date: 20160222
  Receipt Date: 20160222
  Transmission Date: 20160526
  Serious: Yes (Other)
  Sender: FDA-Public Use
  Company Number: None

PATIENT
  Age: 89 Year
  Sex: Female
  Weight: 62 kg

DRUGS (17)
  1. RIVAROXABAN 20 MG JANSSEN [Suspect]
     Active Substance: RIVAROXABAN
     Indication: CEREBROVASCULAR ACCIDENT PROPHYLAXIS
     Route: 048
     Dates: start: 20150522, end: 20150724
  2. RIVAROXABAN [Concomitant]
     Active Substance: RIVAROXABAN
  3. DIGOXIN. [Concomitant]
     Active Substance: DIGOXIN
  4. LEVOTHYROXINE. [Concomitant]
     Active Substance: LEVOTHYROXINE
  5. RIVAROXABAN [Concomitant]
     Active Substance: RIVAROXABAN
  6. OMEPRAZOLE. [Concomitant]
     Active Substance: OMEPRAZOLE
  7. LIDOCAINE. [Concomitant]
     Active Substance: LIDOCAINE
  8. OMEG-3 [Concomitant]
  9. CHOLECALCICFEROL [Concomitant]
  10. RIVAROXABAN 20 MG JANSSEN [Suspect]
     Active Substance: RIVAROXABAN
     Indication: ATRIAL FIBRILLATION
     Route: 048
     Dates: start: 20150522, end: 20150724
  11. DILTIAZEM [Concomitant]
     Active Substance: DILTIAZEM
  12. ASPIRIN. [Concomitant]
     Active Substance: ASPIRIN
  13. CYANOCOBALAMIN. [Concomitant]
     Active Substance: CYANOCOBALAMIN
  14. KCL [Concomitant]
     Active Substance: POTASSIUM CHLORIDE
  15. SENNOSIDES-DOCUSATE SODIUM [Concomitant]
     Active Substance: DOCUSATE SODIUM\SENNOSIDES
  16. ATORVASTATIN [Concomitant]
     Active Substance: ATORVASTATIN
  17. FUROSEMIDE. [Concomitant]
     Active Substance: FUROSEMIDE

REACTIONS (5)
  - Liver function test increased [None]
  - Abdominal pain [None]
  - Hepatomegaly [None]
  - Constipation [None]
  - Abdominal tenderness [None]

NARRATIVE: CASE EVENT DATE: 20150707
